FAERS Safety Report 7489033-9 (Version None)
Quarter: 2011Q1

REPORT INFORMATION
  Report Type: 
  Country: None (occurrence: None)
  Receive Date: 20110316
  Receipt Date: 20110125
  Transmission Date: 20110831
  Serious: Yes (Other)
  Sender: FDA-Public Use
  Company Number: 2010MB000004

PATIENT
  Age: 82 Year
  Sex: Male

DRUGS (2)
  1. RAPAFLO [Suspect]
     Indication: BENIGN PROSTATIC HYPERPLASIA
     Dosage: 8 MG;QD;PO
     Route: 048
     Dates: start: 20100111, end: 20100111
  2. KEFLEX [Suspect]
     Indication: INFECTION
     Dosage: 1500 MG; TOTAL; PO
     Route: 048
     Dates: start: 20100111, end: 20100111

REACTIONS (1)
  - ANAPHYLACTIC REACTION [None]
